FAERS Safety Report 20206466 (Version 1)
Quarter: 2021Q4

REPORT INFORMATION
  Report Type: Report from Study
  Country: US (occurrence: US)
  Receive Date: 20211220
  Receipt Date: 20211220
  Transmission Date: 20220304
  Serious: No
  Sender: FDA-Public Use
  Company Number: US-NOVARTISTESTPH-NVSC2021US290384

PATIENT
  Sex: Male

DRUGS (1)
  1. ILARIS [Suspect]
     Active Substance: CANAKINUMAB
     Indication: Pyrexia
     Dosage: 50 MG, QMO
     Route: 058

REACTIONS (5)
  - Pyrexia [Unknown]
  - Malaise [Unknown]
  - Fatigue [Unknown]
  - Hypersensitivity [Unknown]
  - Therapy non-responder [Unknown]
